FAERS Safety Report 4804362-2 (Version None)
Quarter: 2005Q4

REPORT INFORMATION
  Report Type: 
  Country: None (occurrence: None)
  Receive Date: 20051017
  Receipt Date: 20051005
  Transmission Date: 20060501
  Serious: Yes (Death, Life-Threatening, Other)
  Sender: FDA-Public Use
  Company Number: 2005138657

PATIENT
  Sex: Female

DRUGS (2)
  1. CELEBREX [Suspect]
     Indication: ILL-DEFINED DISORDER
     Dates: start: 19990301, end: 20020808
  2. VIOXX [Suspect]
     Indication: ILL-DEFINED DISORDER
     Dates: start: 19990301, end: 20020808

REACTIONS (1)
  - CARDIAC ARREST [None]
